FAERS Safety Report 20199318 (Version 3)
Quarter: 2022Q2

REPORT INFORMATION
  Report Type: Spontaneous
  Country: US (occurrence: US)
  Receive Date: 20211217
  Receipt Date: 20220610
  Transmission Date: 20220721
  Serious: Yes (Other)
  Sender: FDA-Public Use
  Company Number: US-PFIZER INC-202101748199

PATIENT
  Age: 66 Year
  Sex: Female

DRUGS (4)
  1. IBRANCE [Suspect]
     Active Substance: PALBOCICLIB
     Indication: Breast cancer female
     Dosage: 100 MG
     Dates: start: 20211018
  2. IBRANCE [Suspect]
     Active Substance: PALBOCICLIB
     Dosage: 100 MG, 1X/DAY (TAKE 1 TAB PO QD)
     Route: 048
     Dates: start: 20211108
  3. IBRANCE [Suspect]
     Active Substance: PALBOCICLIB
     Dosage: 100 MG, CYCLIC (1 DAILY FOR 21 DAYS ON 7 DAYS OFF)
     Dates: start: 20211111, end: 20220602
  4. IBRANCE [Suspect]
     Active Substance: PALBOCICLIB
     Dosage: 75 MG, CYCLIC (1 DAILY FOR 21 DAYS ON 7 DAYS OFF)

REACTIONS (7)
  - Neutropenia [Unknown]
  - Fatigue [Unknown]
  - White blood cell count abnormal [Recovered/Resolved]
  - Dry skin [Unknown]
  - Alopecia [Unknown]
  - Decreased appetite [Unknown]
  - White blood cell count decreased [Unknown]
